FAERS Safety Report 6096011-3 (Version None)
Quarter: 2009Q1

REPORT INFORMATION
  Report Type: 
  Country: None (occurrence: None)
  Receive Date: 20090227
  Receipt Date: 20080829
  Transmission Date: 20090719
  Serious: No
  Sender: FDA-Public Use
  Company Number: A0741568A

PATIENT
  Age: 51 Year
  Sex: Female
  Weight: 52.7 kg

DRUGS (4)
  1. LAMICTAL [Suspect]
     Indication: BIPOLAR DISORDER
     Dosage: 25MG PER DAY
     Route: 048
     Dates: start: 20080712, end: 20080715
  2. DOXEPIN HCL [Concomitant]
     Dosage: 10MG TWICE PER DAY
  3. ATIVAN [Concomitant]
     Dosage: .5MG THREE TIMES PER DAY
  4. LISINOPRIL [Concomitant]
     Dosage: 40MG PER DAY

REACTIONS (5)
  - ABDOMINAL DISCOMFORT [None]
  - DIZZINESS [None]
  - HEADACHE [None]
  - TREMOR [None]
  - VISION BLURRED [None]
